FAERS Safety Report 25008904 (Version 1)
Quarter: 2025Q1

REPORT INFORMATION
  Report Type: Spontaneous
  Country: US (occurrence: None)
  Receive Date: 20250224
  Receipt Date: 20250224
  Transmission Date: 20250408
  Serious: No
  Sender: FDA-CTU
  Company Number: None

PATIENT
  Age: 10 Year
  Sex: Female

DRUGS (1)
  1. YCANTH [Suspect]
     Active Substance: CANTHARIDIN
     Indication: Cow pox
     Dosage: OTHER FREQUENCY : EVERY 21 DAYS;?
     Route: 061
     Dates: start: 20250203

REACTIONS (2)
  - Pain [None]
  - Blister [None]

NARRATIVE: CASE EVENT DATE: 20250203
